FAERS Safety Report 16111073 (Version 1)
Quarter: 2019Q2

REPORT INFORMATION
  Report Type: Spontaneous
  Country: US (occurrence: US)
  Receive Date: 20190322
  Receipt Date: 20190322
  Transmission Date: 20190711
  Serious: Yes (Life-Threatening, Hospitalization, Disabling)
  Sender: FDA-Public Use
  Company Number: None

PATIENT
  Age: 52 Year
  Sex: Male
  Weight: 90 kg

DRUGS (10)
  1. PEPCID [Concomitant]
     Active Substance: FAMOTIDINE
  2. IV-IG [Concomitant]
  3. BABY ASPIRIN 81MG [Concomitant]
  4. PREDIZONE [Concomitant]
  5. ONE A DAY MEN^S MULTI-VITAMIN [Concomitant]
  6. RITUXAN [Concomitant]
     Active Substance: RITUXIMAB
  7. ATORVASTATIN CALCIUM 40 MG TABS [Suspect]
     Active Substance: ATORVASTATIN CALCIUM
     Indication: BLOOD CHOLESTEROL INCREASED
     Dosage: ?          QUANTITY:1 TABLET(S);?
     Route: 048
     Dates: start: 20181207, end: 20190119
  8. LISINOPRIL. [Concomitant]
     Active Substance: LISINOPRIL
  9. METOPROLOL. [Concomitant]
     Active Substance: METOPROLOL
  10. VITAMIN B12 [Concomitant]
     Active Substance: CYANOCOBALAMIN

REACTIONS (8)
  - Anal incontinence [None]
  - Insurance issue [None]
  - Erectile dysfunction [None]
  - Feeling abnormal [None]
  - Autoimmune disorder [None]
  - Rhabdomyolysis [None]
  - Apnoea [None]
  - Arthralgia [None]

NARRATIVE: CASE EVENT DATE: 20190122
